FAERS Safety Report 13147158 (Version 5)
Quarter: 2018Q1

REPORT INFORMATION
  Report Type: Report from Study
  Country: US (occurrence: US)
  Receive Date: 20170124
  Receipt Date: 20180125
  Transmission Date: 20180508
  Serious: No
  Sender: FDA-Public Use
  Company Number: US-AMGEN-USASL2016159608

PATIENT
  Age: 66 Year
  Sex: Male

DRUGS (1)
  1. REPATHA [Suspect]
     Active Substance: EVOLOCUMAB
     Indication: CARDIAC DISORDER
     Dosage: 420 MG, QMO
     Route: 065
     Dates: start: 201610

REACTIONS (3)
  - Chest pain [Unknown]
  - Off label use [Unknown]
  - Feeling abnormal [Unknown]
